FAERS Safety Report 14999808 (Version 1)
Quarter: 2018Q2

REPORT INFORMATION
  Report Type: Spontaneous
  Country: DE (occurrence: DE)
  Receive Date: 20180612
  Receipt Date: 20180612
  Transmission Date: 20180711
  Serious: Yes (Hospitalization)
  Sender: FDA-Public Use
  Company Number: DE-TEVA-2018-DE-905217

PATIENT
  Age: 68 Year
  Sex: Female
  Weight: 78 kg

DRUGS (5)
  1. PERTUZUMAB. [Suspect]
     Active Substance: PERTUZUMAB
     Dosage: 420 MG, EVERY 3 WEEKS, SOLUTION FOR INJECTION / INFUSION
     Route: 042
  2. TRASTUZUMAB. [Suspect]
     Active Substance: TRASTUZUMAB
     Dosage: 6 MG / KG BW, EVERY 3 WEEKS, SOLUTION FOR INJECTION / INFUSION
     Route: 042
  3. LEVOTHYROXINE SODIUM. [Concomitant]
     Active Substance: LEVOTHYROXINE SODIUM
     Dosage: 50 MICROGRAM DAILY; 50 ?G, 1-0-0, TABLETTEN
     Route: 048
  4. DOCETAXEL. [Suspect]
     Active Substance: DOCETAXEL
     Dosage: 75 MG / M? KOF, EVERY 3 WEEKS, SOLUTION FOR INJECTION / INFUSION
     Route: 042
  5. HUMALOG MIX [Concomitant]
     Active Substance: INSULIN LISPRO
     Dosage: 70 IU (INTERNATIONAL UNIT) DAILY; 50/50 IU, 35-35-0, INJECTION / INFUSION SOLUTION
     Route: 058

REACTIONS (4)
  - General physical health deterioration [Unknown]
  - Nausea [Unknown]
  - Leukopenia [Unknown]
  - Vomiting [Unknown]
